FAERS Safety Report 19900228 (Version 2)
Quarter: 2023Q1

REPORT INFORMATION
  Report Type: Report from Study
  Country: IT (occurrence: IT)
  Receive Date: 20210929
  Receipt Date: 20230222
  Transmission Date: 20230418
  Serious: Yes (Other)
  Sender: FDA-Public Use
  Company Number: IT-ROCHE-2086865

PATIENT
  Sex: Female
  Weight: 64 kg

DRUGS (19)
  1. PACLITAXEL [Suspect]
     Active Substance: PACLITAXEL
     Indication: HER2 positive breast cancer
     Dosage: 80 MILLIGRAM/SQ. METER, QW
     Route: 042
     Dates: start: 20170908, end: 20171229
  2. PACLITAXEL [Suspect]
     Active Substance: PACLITAXEL
     Indication: Breast cancer
  3. EXEMESTANE [Suspect]
     Active Substance: EXEMESTANE
     Indication: HER2 positive breast cancer
     Dosage: 25 MILLIGRAM, QD
     Route: 048
     Dates: start: 20181228
  4. TRASTUZUMAB [Suspect]
     Active Substance: TRASTUZUMAB
     Indication: Breast cancer
     Dosage: 8 MILLIGRAM/SQ. METER, Q3W
     Route: 042
     Dates: start: 20170908, end: 20170908
  5. TRASTUZUMAB [Suspect]
     Active Substance: TRASTUZUMAB
     Indication: HER2 positive breast cancer
     Dosage: 6 MILLIGRAM/KILOGRAM, Q3W
     Route: 042
     Dates: start: 20170929
  6. TRASTUZUMAB [Suspect]
     Active Substance: TRASTUZUMAB
     Dosage: 380 MILLIGRAM, Q3W
     Route: 042
     Dates: start: 20170929
  7. PERTUZUMAB [Suspect]
     Active Substance: PERTUZUMAB
     Indication: Breast cancer
     Dosage: 840MG,Q3W,RECENT DOSE PRIOR EVENT: 29/SEP/2017
     Route: 042
     Dates: start: 20170908, end: 20170908
  8. PERTUZUMAB [Suspect]
     Active Substance: PERTUZUMAB
     Indication: HER2 positive breast cancer
     Dosage: 420 MILLIGRAM, Q3W
     Route: 042
     Dates: start: 20170929
  9. RIFAXIMIN [Concomitant]
     Active Substance: RIFAXIMIN
     Indication: Diverticulitis
     Dosage: UNK
     Route: 065
     Dates: start: 20190508
  10. CHLORPHENIRAMINE MALEATE [Concomitant]
     Active Substance: CHLORPHENIRAMINE MALEATE
     Dosage: UNK (ONGOING = NOT CHECKED)
     Route: 065
     Dates: start: 20160219, end: 20171229
  11. PREGABALIN [Concomitant]
     Active Substance: PREGABALIN
     Indication: Pain in jaw
     Dosage: UNK, ONGOING = CHECKED
     Route: 065
     Dates: start: 20180824
  12. DEXAMETHASONE [Concomitant]
     Active Substance: DEXAMETHASONE
     Dosage: UNK, ONGOING = CHECKED
     Route: 065
     Dates: start: 20160219
  13. RANITIDINE [Concomitant]
     Active Substance: RANITIDINE
     Dosage: UNK, ONGOING = NOT CHECKED
     Route: 065
     Dates: start: 20160219, end: 20171229
  14. OMEPRAZOLE [Concomitant]
     Active Substance: OMEPRAZOLE
     Indication: Gastrooesophageal reflux disease
     Dosage: UNK
     Route: 065
     Dates: start: 20190508, end: 20190522
  15. CANDESARTAN CILEXETIL [Concomitant]
     Active Substance: CANDESARTAN CILEXETIL
     Indication: Ejection fraction decreased
     Dosage: UNK, ONGOING = CHECKED
     Route: 065
     Dates: start: 20180528
  16. ONDANSETRON [Concomitant]
     Active Substance: ONDANSETRON
     Dosage: 8.00 MG (MILLIGRAM) LIQUID IV (INTRAVENOUS) OTHER
     Route: 042
     Dates: start: 20180914
  17. ESOMEPRAZOLE [Concomitant]
     Active Substance: ESOMEPRAZOLE
     Dosage: 40.00 MG,QOD(EVERY OTHER DAY)  ,CAPSULE PO (ORAL)
     Route: 048
     Dates: start: 20200417
  18. PANTOPRAZOLE [Concomitant]
     Active Substance: PANTOPRAZOLE
     Dosage: 20.00 MG,QOD(EVERY OTHER DAY)  ,CAPSULE PO (ORAL)
     Route: 048
     Dates: start: 20200306, end: 20200416
  19. RAMIPRIL [Concomitant]
     Active Substance: RAMIPRIL
     Dosage: 2.50 MG CAPSULE PO (ORAL) BID (TWICE A DAY)
     Route: 048
     Dates: start: 20180426, end: 20180527

REACTIONS (11)
  - Thrombosis [Recovered/Resolved]
  - Diverticulitis [Recovered/Resolved]
  - Glossitis [Recovered/Resolved]
  - Oedema peripheral [Not Recovered/Not Resolved]
  - Asthenia [Recovered/Resolved]
  - Anaemia [Recovered/Resolved]
  - Gastrooesophageal reflux disease [Recovered/Resolved]
  - Microangiopathy [Not Recovered/Not Resolved]
  - Diarrhoea [Recovered/Resolved]
  - Nail infection [Recovered/Resolved]
  - Nausea [Recovered/Resolved]

NARRATIVE: CASE EVENT DATE: 20171111
